FAERS Safety Report 8320969 (Version 2)
Quarter: 2012Q4

REPORT INFORMATION
  Report Type: 
  Country: GB (occurrence: GB)
  Receive Date: 20120104
  Receipt Date: 20121005
  Transmission Date: 20130627
  Serious: Yes (Death, Disabling, Other)
  Sender: FDA-Public Use
  Company Number: GB-BAYER-2011-123046

PATIENT
  Sex: Male

DRUGS (2)
  1. OFLOXACIN [Suspect]
  2. CIPROFLOXACIN MONOHYDROCHLORIDE [Suspect]

REACTIONS (7)
  - Toxicity to various agents [None]
  - Feeling abnormal [None]
  - Tendonitis [None]
  - Malaise [None]
  - Shock [None]
  - Adverse drug reaction [None]
  - Death [Fatal]
